FAERS Safety Report 23327431 (Version 3)
Quarter: 2024Q4

REPORT INFORMATION
  Report Type: Spontaneous
  Country: DE (occurrence: DE)
  Receive Date: 20231221
  Receipt Date: 20241226
  Transmission Date: 20250115
  Serious: Yes (Hospitalization)
  Sender: ROCHE
  Company Number: DE-ROCHE-3479275

PATIENT
  Age: 53 Year
  Sex: Female
  Weight: 80.0 kg

DRUGS (1)
  1. OCREVUS [Suspect]
     Active Substance: OCRELIZUMAB
     Indication: Multiple sclerosis
     Dosage: SUBSEQUENT DOSE OF OCRELIZUMAB: 01/JUN/2023
     Route: 042
     Dates: start: 20220928

REACTIONS (1)
  - Thyroid cancer metastatic [Unknown]

NARRATIVE: CASE EVENT DATE: 20230101
